FAERS Safety Report 10467633 (Version 1)
Quarter: 2014Q3

REPORT INFORMATION
  Report Type: Spontaneous
  Country: IT (occurrence: IT)
  Receive Date: 20140922
  Receipt Date: 20140922
  Transmission Date: 20150326
  Serious: Yes (Hospitalization, Other)
  Sender: FDA-Public Use
  Company Number: IT-PFIZER INC-2014256255

PATIENT
  Age: 27 Year
  Sex: Male

DRUGS (5)
  1. NOZINAN [Concomitant]
     Active Substance: LEVOMEPROMAZINE
  2. DIAZEPAM. [Suspect]
     Active Substance: DIAZEPAM
     Dosage: UNK
  3. CHLORDIAZEPOXIDE [Suspect]
     Active Substance: CHLORDIAZEPOXIDE
     Dosage: UNK
  4. ALPRAZOLAM. [Suspect]
     Active Substance: ALPRAZOLAM
     Dosage: UNK
  5. TEMAZEPAM. [Suspect]
     Active Substance: TEMAZEPAM
     Dosage: UNK

REACTIONS (7)
  - Toxicity to various agents [Unknown]
  - Psychotic disorder [Unknown]
  - Hallucination [Recovered/Resolved]
  - Delirium [Unknown]
  - Loss of consciousness [Recovered/Resolved]
  - Suicidal ideation [Recovered/Resolved]
  - Postural reflex impairment [Unknown]
